FAERS Safety Report 9602595 (Version 1)
Quarter: 2013Q4

REPORT INFORMATION
  Report Type: Report from Study
  Country: US (occurrence: US)
  Receive Date: 20131007
  Receipt Date: 20131007
  Transmission Date: 20140711
  Serious: Yes (Other)
  Sender: FDA-Public Use
  Company Number: US-US-EMD SERONO, INC.-7241255

PATIENT
  Sex: Male

DRUGS (4)
  1. REBIF [Suspect]
     Indication: MULTIPLE SCLEROSIS
     Route: 058
     Dates: start: 20130615
  2. ALEVE                              /00256202/ [Concomitant]
     Indication: BACK INJURY
  3. IBUPROFEN [Concomitant]
     Indication: BACK INJURY
  4. NEURONTIN [Concomitant]
     Indication: PARAESTHESIA

REACTIONS (5)
  - Meniscus injury [Unknown]
  - Rhinorrhoea [Unknown]
  - Malaise [Unknown]
  - Injection site bruising [Not Recovered/Not Resolved]
  - Injection site erythema [Not Recovered/Not Resolved]
